FAERS Safety Report 10196506 (Version 1)
Quarter: 2014Q2

REPORT INFORMATION
  Report Type: Spontaneous
  Country: US (occurrence: None)
  Receive Date: 20140522
  Receipt Date: 20140522
  Transmission Date: 20141212
  Serious: Yes (Hospitalization, Other)
  Sender: FDA-Public Use
  Company Number: AUR-APL-2014-05947

PATIENT
  Age: 28 Year
  Sex: Male

DRUGS (1)
  1. ALPRAZOLAM (ALPRAZOLAM) [Suspect]
     Indication: PRODUCT USED FOR UNKNOWN INDICATION
     Dosage: 3 MG (1 MG,3 IN 1 D)
     Route: 048

REACTIONS (13)
  - Tachycardia [None]
  - Hypertension [None]
  - Confusional state [None]
  - Dysarthria [None]
  - Restlessness [None]
  - Agitation [None]
  - Road traffic accident [None]
  - Craniocerebral injury [None]
  - Depressed level of consciousness [None]
  - Subarachnoid haemorrhage [None]
  - Splenic rupture [None]
  - Haematocrit decreased [None]
  - Blood ethanol increased [None]
